FAERS Safety Report 4626364-1 (Version None)
Quarter: 2005Q2

REPORT INFORMATION
  Report Type: 
  Country: None (occurrence: None)
  Receive Date: 20050404
  Receipt Date: 20050324
  Transmission Date: 20051028
  Serious: Yes (Other)
  Sender: FDA-Public Use
  Company Number: CN-GLAXOSMITHKLINE-B0376506A

PATIENT
  Sex: Female

DRUGS (1)
  1. CEFUROXIME AXETIL [Suspect]
     Indication: GLOMERULONEPHRITIS
     Route: 065
     Dates: start: 20040501, end: 20050323

REACTIONS (2)
  - BLOOD BILIRUBIN INCREASED [None]
  - WHITE BLOOD CELLS URINE POSITIVE [None]
